FAERS Safety Report 9181825 (Version 2)
Quarter: 2013Q2

REPORT INFORMATION
  Report Type: Report from Study
  Country: US (occurrence: US)
  Receive Date: 20130322
  Receipt Date: 20130411
  Transmission Date: 20140414
  Serious: Yes (Hospitalization)
  Sender: FDA-Public Use
  Company Number: US-ACTELION-A-NJ2013-81087

PATIENT
  Age: 81 Year
  Sex: Female

DRUGS (2)
  1. VENTAVIS [Suspect]
     Indication: PULMONARY ARTERIAL HYPERTENSION
     Dosage: 5 UNK, UNK
     Route: 055
  2. LETAIRIS [Concomitant]

REACTIONS (2)
  - Interstitial lung disease [Recovering/Resolving]
  - Biopsy lung [Recovering/Resolving]
